FAERS Safety Report 5313932-7 (Version None)
Quarter: 2007Q2

REPORT INFORMATION
  Report Type: 
  Country: None (occurrence: None)
  Receive Date: 20070501
  Receipt Date: 20070430
  Transmission Date: 20071010
  Serious: Yes (Death, Hospitalization)
  Sender: FDA-Public Use
  Company Number: HQWYE916201MAY07

PATIENT
  Sex: Male
  Weight: 56.75 kg

DRUGS (1)
  1. PRIMATENE MIST [Suspect]
     Indication: LUNG DISORDER
     Dosage: UNKNOWN
     Route: 055
     Dates: start: 20040101

REACTIONS (1)
  - LUNG DISORDER [None]
